FAERS Safety Report 7762544-4 (Version None)
Quarter: 2011Q3

REPORT INFORMATION
  Report Type: 
  Country: None (occurrence: None)
  Receive Date: 20110920
  Receipt Date: 20110903
  Transmission Date: 20111222
  Serious: No
  Sender: FDA-Public Use
  Company Number: US-B.I. PHARMACEUTICALS,INC./RIDGEFIELD-2011-BP-03501BP

PATIENT
  Sex: Female

DRUGS (10)
  1. PRADAXA [Suspect]
     Dosage: 150 MG
     Route: 048
  2. KLONOPIN [Concomitant]
     Indication: NERVOUSNESS
     Dosage: 2 MG
  3. KLOR-CON [Concomitant]
     Indication: SUPPLEMENTATION THERAPY
  4. BENICAR [Concomitant]
     Indication: HYPERTENSION
  5. PRADAXA [Suspect]
     Indication: ATRIAL FIBRILLATION
     Dosage: 300 MG
     Route: 048
     Dates: start: 20100101
  6. SERTRALINE HYDROCHLORIDE [Concomitant]
     Indication: DEPRESSION
  7. SPIRONOLACTONE [Concomitant]
  8. AMLODIPINE [Concomitant]
     Indication: HYPERTENSION
  9. SIMVASTATIN [Concomitant]
     Indication: BLOOD CHOLESTEROL INCREASED
  10. AMIODARONE HCL [Concomitant]
     Indication: ATRIAL FIBRILLATION

REACTIONS (4)
  - WRIST FRACTURE [None]
  - PRURITUS [None]
  - THROAT IRRITATION [None]
  - CONTUSION [None]
